FAERS Safety Report 8534844-1 (Version None)
Quarter: 2012Q3

REPORT INFORMATION
  Report Type: 
  Country: None (occurrence: None)
  Receive Date: 20120724
  Receipt Date: 20120710
  Transmission Date: 20120928
  Serious: Yes (Other)
  Sender: FDA-Public Use
  Company Number: KR-WATSON-2012-10800

PATIENT
  Age: 76 Year
  Sex: Male

DRUGS (2)
  1. CARBOPLATIN [Suspect]
     Indication: NON-SMALL CELL LUNG CANCER
     Dosage: 1214 MG CUMULATIVE DOSAGES
     Route: 065
  2. GEMCITABINE [Suspect]
     Indication: NON-SMALL CELL LUNG CANCER
     Dosage: 9001MG CUMULATIVE DOSE
     Route: 065
     Dates: start: 20101101, end: 20110401

REACTIONS (1)
  - HAEMOLYTIC URAEMIC SYNDROME [None]
